FAERS Safety Report 5771934-0 (Version None)
Quarter: 2008Q2

REPORT INFORMATION
  Report Type: 
  Country: None (occurrence: None)
  Receive Date: 20080612
  Receipt Date: 20080612
  Transmission Date: 20081010
  Serious: Yes (Other)
  Sender: FDA-Public Use
  Company Number: None

PATIENT
  Sex: Male
  Weight: 92.9874 kg

DRUGS (1)
  1. CHANTIX [Suspect]
     Dosage: 1MG 2 TIMES DAY PO
     Route: 048
     Dates: start: 20080401, end: 20080505

REACTIONS (1)
  - FEELING ABNORMAL [None]
